FAERS Safety Report 22526067 (Version 1)
Quarter: 2023Q2

REPORT INFORMATION
  Report Type: Spontaneous
  Country: US (occurrence: None)
  Receive Date: 20230605
  Receipt Date: 20230605
  Transmission Date: 20230722
  Serious: Yes (Other)
  Sender: FDA-Public Use
  Company Number: None

PATIENT
  Sex: Male

DRUGS (1)
  1. ABIRATERONE [Suspect]
     Active Substance: ABIRATERONE
     Dosage: 1000MG DAILY ORAL
     Route: 048

REACTIONS (10)
  - Balance disorder [None]
  - Vertigo [None]
  - Lung perforation [None]
  - Muscle spasms [None]
  - Gait disturbance [None]
  - Fall [None]
  - Incision site swelling [None]
  - Incision site erythema [None]
  - Retinal detachment [None]
  - Blindness [None]
